FAERS Safety Report 13504628 (Version 2)
Quarter: 2017Q2

REPORT INFORMATION
  Report Type: Spontaneous
  Country: US (occurrence: US)
  Receive Date: 20170502
  Receipt Date: 20170630
  Transmission Date: 20170830
  Serious: No
  Sender: FDA-Public Use
  Company Number: US-IMPAX LABORATORIES, INC-2017-IPXL-00891

PATIENT
  Sex: Female
  Weight: 63 kg

DRUGS (8)
  1. RYTARY [Concomitant]
     Active Substance: CARBIDOPA\LEVODOPA
     Indication: PARKINSON^S DISEASE
     Dosage: 36.25/145 MG ONE CAPSULE, THRICE DAILY
     Route: 048
     Dates: start: 20170317
  2. FLUOXETINE [Concomitant]
     Active Substance: FLUOXETINE HYDROCHLORIDE
     Indication: PRODUCT USED FOR UNKNOWN INDICATION
     Dosage: 15 MG AT 08:30 PM, UNK
     Route: 065
     Dates: start: 201602
  3. MELATONIN [Concomitant]
     Active Substance: MELATONIN
     Indication: PRODUCT USED FOR UNKNOWN INDICATION
     Dosage: 2-3 MG AT 08:30 PM, UNK
     Route: 065
     Dates: start: 201606
  4. CARBIDOPA-LEVODOPA ER [Suspect]
     Active Substance: CARBIDOPA\LEVODOPA
     Dosage: EXTENDED RELEASE, 2 /DAY AT 9 AM AND 3 PM
     Route: 065
     Dates: start: 20160324
  5. RYTARY [Concomitant]
     Active Substance: CARBIDOPA\LEVODOPA
     Dosage: 36.25/145 MG TWO CAPSULE, THRICE DAILYUNK
     Route: 048
  6. ALPRAZOLAM. [Concomitant]
     Active Substance: ALPRAZOLAM
     Indication: ANXIETY
     Dosage: 0.25 MG, 2 /DAY AT 8 AM AND 2 PM
     Route: 065
     Dates: start: 20150805
  7. CARBIDOPA-LEVODOPA ER [Suspect]
     Active Substance: CARBIDOPA\LEVODOPA
     Indication: PARKINSON^S DISEASE
     Dosage: 25/100 MG, TWO PILLS AT 6 AM, 9 AM, 12 PM 3 PM 6 PM
     Route: 065
     Dates: start: 20080221
  8. BUSPAR [Concomitant]
     Active Substance: BUSPIRONE HYDROCHLORIDE
     Indication: ANXIETY
     Dosage: 0.5 MG, 3 /DAY AT 6 AM, 12 PM, AND 6 PM
     Route: 065
     Dates: start: 20170322

REACTIONS (1)
  - Therapeutic response shortened [Unknown]
